FAERS Safety Report 25650118 (Version 2)
Quarter: 2025Q4

REPORT INFORMATION
  Report Type: Spontaneous
  Country: US (occurrence: US)
  Receive Date: 20250806
  Receipt Date: 20251218
  Transmission Date: 20260117
  Serious: Yes (Hospitalization)
  Sender: ELI LILLY AND COMPANY
  Company Number: US-ELI_LILLY_AND_COMPANY-US202507026787

PATIENT
  Age: 53 Year
  Sex: Female
  Weight: 96.145 kg

DRUGS (10)
  1. MOUNJARO [Suspect]
     Active Substance: TIRZEPATIDE
     Indication: Type 2 diabetes mellitus
     Dosage: 5 MG, WEEKLY (1/W)
     Route: 065
     Dates: start: 202205
  2. MOUNJARO [Suspect]
     Active Substance: TIRZEPATIDE
     Indication: Type 2 diabetes mellitus
     Dosage: 5 MG, WEEKLY (1/W)
     Route: 065
     Dates: start: 202205
  3. MOUNJARO [Suspect]
     Active Substance: TIRZEPATIDE
     Dosage: 5 MG, WEEKLY (1/W)
     Route: 065
     Dates: start: 20230307, end: 20240714
  4. MOUNJARO [Suspect]
     Active Substance: TIRZEPATIDE
     Dosage: 5 MG, WEEKLY (1/W)
     Route: 065
     Dates: start: 20230307, end: 20240714
  5. METFORMIN [Concomitant]
     Active Substance: METFORMIN HYDROCHLORIDE
     Indication: Diabetes mellitus
     Dosage: UNK UNK, UNKNOWN
     Route: 065
     Dates: start: 20230323
  6. GABAPENTIN [Concomitant]
     Active Substance: GABAPENTIN
     Indication: Diabetes mellitus
     Dosage: UNK UNK, UNKNOWN
     Route: 065
     Dates: start: 20230401
  7. TRESIBA [Concomitant]
     Active Substance: INSULIN DEGLUDEC
     Indication: Diabetes mellitus
     Dosage: UNK UNK, UNKNOWN
     Route: 065
     Dates: start: 20230501
  8. ROSUVASTATIN [Concomitant]
     Active Substance: ROSUVASTATIN
     Indication: Blood cholesterol increased
     Dosage: UNK UNK, UNKNOWN
     Route: 065
     Dates: start: 20230301
  9. NYSTATIN [Concomitant]
     Active Substance: NYSTATIN
     Indication: Blood cholesterol increased
     Dosage: UNK UNK, UNKNOWN
     Route: 065
     Dates: start: 20230401
  10. LEVOTHYROXINE [Concomitant]
     Active Substance: LEVOTHYROXINE
     Indication: Hypothyroidism
     Dosage: UNK UNK, UNKNOWN
     Route: 065
     Dates: start: 20230301

REACTIONS (8)
  - Impaired gastric emptying [Recovered/Resolved]
  - Nausea [Recovered/Resolved]
  - Vomiting [Recovered/Resolved]
  - Diarrhoea [Recovered/Resolved]
  - Abdominal pain [Recovered/Resolved]
  - Dyspepsia [Unknown]
  - Abdominal distension [Unknown]
  - Constipation [Unknown]

NARRATIVE: CASE EVENT DATE: 20230101
